FAERS Safety Report 21083111 (Version 2)
Quarter: 2022Q3

REPORT INFORMATION
  Report Type: Spontaneous
  Country: JP (occurrence: JP)
  Receive Date: 20220714
  Receipt Date: 20220819
  Transmission Date: 20221027
  Serious: Yes (Hospitalization, Other)
  Sender: FDA-Public Use
  Company Number: JP-PFIZER INC-PV202200019422

PATIENT
  Age: 30 Year
  Sex: Female
  Weight: 48.1 kg

DRUGS (4)
  1. VFEND [Suspect]
     Active Substance: VORICONAZOLE
     Indication: Bronchopulmonary aspergillosis
     Dosage: 150 MG, 2X/DAY(DOUBLE AMOUNT ONLY FOR THE FIRST DOSE)
     Route: 048
     Dates: start: 20220427, end: 20220502
  2. VFEND [Suspect]
     Active Substance: VORICONAZOLE
     Dosage: 100 MG, 2X/DAY
     Route: 048
     Dates: start: 20220502, end: 20220613
  3. LOXOPROFEN SODIUM DIHYDRATE [Concomitant]
     Active Substance: LOXOPROFEN SODIUM DIHYDRATE
     Indication: Wound complication
     Dosage: 60 MG, 2X/DAY AS NEEDED WHEN IN PAIN
     Route: 048
     Dates: start: 20220519, end: 20220613
  4. REBAMIPIDE [Concomitant]
     Active Substance: REBAMIPIDE
     Indication: Wound complication
     Dosage: 100 MG, 2X/DAY, AS NEEDED WHEN IN PAIN
     Route: 048
     Dates: start: 20220519, end: 20220613

REACTIONS (5)
  - Liver disorder [Recovering/Resolving]
  - Gallbladder oedema [Unknown]
  - Cholelithiasis [Unknown]
  - Abdominal pain upper [Unknown]
  - Drug level fluctuating [Unknown]

NARRATIVE: CASE EVENT DATE: 20220501
